FAERS Safety Report 18483062 (Version 3)
Quarter: 2020Q4

REPORT INFORMATION
  Report Type: Spontaneous
  Country: PT (occurrence: PT)
  Receive Date: 20201109
  Receipt Date: 20201124
  Transmission Date: 20210114
  Serious: Yes (Other)
  Sender: FDA-Public Use
  Company Number: PT-GILEAD-2020-0500912

PATIENT
  Age: 61 Year
  Sex: Male
  Weight: 75 kg

DRUGS (22)
  1. ERYTHROMYCIN. [Concomitant]
     Active Substance: ERYTHROMYCIN
  2. VEKLURY [Suspect]
     Active Substance: REMDESIVIR
     Indication: COVID-19
     Dosage: 200 MG, ONCE
     Route: 042
     Dates: start: 20201001, end: 20201001
  3. ACETYLSALICYLIC ACID [Concomitant]
     Active Substance: ASPIRIN
  4. ENOXAPARIN SODIUM. [Concomitant]
     Active Substance: ENOXAPARIN SODIUM
  5. DOMPERIDONE [Concomitant]
     Active Substance: DOMPERIDONE
  6. AMLODIPINE [Concomitant]
     Active Substance: AMLODIPINE BESYLATE
  7. AMLODIPINE [Concomitant]
     Active Substance: AMLODIPINE BESYLATE
  8. SUCRALFATE. [Concomitant]
     Active Substance: SUCRALFATE
  9. DOMPERIDONE [Concomitant]
     Active Substance: DOMPERIDONE
  10. TERAZOSIN [Concomitant]
     Active Substance: TERAZOSIN HYDROCHLORIDE
  11. INSULIN HUMAN [Concomitant]
     Active Substance: INSULIN HUMAN
     Route: 058
  12. INSULIN HUMAN [Concomitant]
     Active Substance: INSULIN HUMAN
     Route: 058
  13. VEKLURY [Suspect]
     Active Substance: REMDESIVIR
     Dosage: 100 UNK, QD
     Route: 042
     Dates: start: 20201002, end: 20201011
  14. TRIVERAM [Concomitant]
     Active Substance: AMLODIPINE\ATORVASTATIN\PERINDOPRIL
  15. ERYTHROMYCIN. [Concomitant]
     Active Substance: ERYTHROMYCIN
  16. DUTASTERIDE. [Concomitant]
     Active Substance: DUTASTERIDE
  17. ALFENTANIL. [Concomitant]
     Active Substance: ALFENTANIL
  18. TERAZOSIN [Concomitant]
     Active Substance: TERAZOSIN HYDROCHLORIDE
  19. SUCRALFATE. [Concomitant]
     Active Substance: SUCRALFATE
  20. ALFENTANIL. [Concomitant]
     Active Substance: ALFENTANIL
  21. ENOXAPARIN SODIUM. [Concomitant]
     Active Substance: ENOXAPARIN SODIUM
  22. METFORMINA + VILDAGLIPTINA [Concomitant]
     Active Substance: METFORMIN HYDROCHLORIDE\VILDAGLIPTIN

REACTIONS (2)
  - Acute kidney injury [Unknown]
  - COVID-19 treatment [Unknown]

NARRATIVE: CASE EVENT DATE: 20201001
